FAERS Safety Report 13046195 (Version 1)
Quarter: 2016Q4

REPORT INFORMATION
  Report Type: Spontaneous
  Country: US (occurrence: US)
  Receive Date: 20161220
  Receipt Date: 20161220
  Transmission Date: 20170207
  Serious: No
  Sender: FDA-Public Use
  Company Number: US-PFIZER INC-2016578332

PATIENT
  Age: 57 Year
  Sex: Male

DRUGS (3)
  1. VIAGRA [Suspect]
     Active Substance: SILDENAFIL CITRATE
     Indication: ERECTILE DYSFUNCTION
     Dosage: 50 MG, UNK
  2. VIAGRA [Interacting]
     Active Substance: SILDENAFIL CITRATE
     Dosage: 100 MG, UNK
  3. LYRICA [Interacting]
     Active Substance: PREGABALIN
     Indication: PAIN
     Dosage: 50 MG, UNK

REACTIONS (2)
  - Drug interaction [Unknown]
  - Drug ineffective [Unknown]
